FAERS Safety Report 5862372-0 (Version None)
Quarter: 2008Q3

REPORT INFORMATION
  Report Type: 
  Country: None (occurrence: None)
  Receive Date: 20080826
  Receipt Date: 20080820
  Transmission Date: 20090109
  Serious: Yes (Other)
  Sender: FDA-Public Use
  Company Number: DE-1166769

PATIENT
  Age: 43 Year
  Sex: Female

DRUGS (3)
  1. BETOPTIC [Suspect]
     Indication: OPEN ANGLE GLAUCOMA
     Dosage: OPHTHALMIC
     Route: 047
     Dates: start: 20010101
  2. UTROGEST (PROGESTERONE) [Concomitant]
  3. PREDALON (CHORIONIC GONADOTROPHIN [Concomitant]

REACTIONS (4)
  - ABORTION [None]
  - AMNIOTIC CAVITY DISORDER [None]
  - BLOOD HUMAN CHORIONIC GONADOTROPIN DECREASED [None]
  - DRUG EXPOSURE DURING PREGNANCY [None]
